FAERS Safety Report 15612862 (Version 1)
Quarter: 2018Q4

REPORT INFORMATION
  Report Type: Spontaneous
  Country: US (occurrence: US)
  Receive Date: 20181107
  Receipt Date: 20181107
  Transmission Date: 20190205
  Serious: Yes (Hospitalization)
  Sender: FDA-Public Use
  Company Number: None

PATIENT
  Age: 5 Year
  Sex: Female
  Weight: 14.9 kg

DRUGS (5)
  1. DOXORUBICIN HYDROCHLORIDE. [Suspect]
     Active Substance: DOXORUBICIN HYDROCHLORIDE
     Dosage: ?          OTHER DOSE:.75 MG;?
     Dates: end: 20180221
  2. G-CSF (FILGRASTIM, AMGEN) [Suspect]
     Active Substance: FILGRASTIM
     Dates: end: 20180223
  3. CYCLOPHOSPHAMIDE. [Suspect]
     Active Substance: CYCLOPHOSPHAMIDE
     Dates: end: 20180221
  4. MESNA. [Suspect]
     Active Substance: MESNA
     Dates: end: 20180221
  5. VINCRISTINE SULFATE. [Suspect]
     Active Substance: VINCRISTINE SULFATE
     Dates: end: 20180221

REACTIONS (5)
  - Platelet count decreased [None]
  - Ileus [None]
  - White blood cell count decreased [None]
  - Constipation [None]
  - Neutropenia [None]

NARRATIVE: CASE EVENT DATE: 20180227
